FAERS Safety Report 6813071-X (Version None)
Quarter: 2010Q3

REPORT INFORMATION
  Report Type: 
  Country: None (occurrence: None)
  Receive Date: 20100701
  Receipt Date: 20100624
  Transmission Date: 20110219
  Serious: Yes (Death)
  Sender: FDA-Public Use
  Company Number: JP-BRISTOL-MYERS SQUIBB COMPANY-14998553

PATIENT
  Age: 83 Year
  Sex: Female
  Weight: 40 kg

DRUGS (7)
  1. SPRYCEL [Suspect]
     Indication: CHRONIC MYELOID LEUKAEMIA
     Dosage: ROUTE: GASTROSTOMY, ALSO TAKEN 50MG/DAY
     Dates: start: 20100113, end: 20100218
  2. GASTER [Concomitant]
     Indication: PROPHYLAXIS AGAINST GASTROINTESTINAL ULCER
     Dosage: FORMULATION POWDER.
     Route: 048
  3. CEFZON [Concomitant]
     Indication: INFECTION
     Dosage: GRANULES.
     Route: 048
     Dates: start: 20100118, end: 20100123
  4. KLARICID [Concomitant]
     Indication: INFECTION
     Dosage: SYRUP.
     Route: 048
     Dates: start: 20100125, end: 20100203
  5. VFEND [Concomitant]
     Indication: INFECTION
     Dosage: TABLET.
     Route: 048
     Dates: start: 20100202, end: 20100217
  6. CEFPIROME SULFATE [Concomitant]
     Indication: INFECTION
     Dosage: 1DF-8 UNITS NOT SPECIFIED.INJECTION.
     Route: 042
     Dates: start: 20100112, end: 20100118
  7. BIKLIN [Concomitant]
     Indication: INFECTION
     Dosage: INJECTION.
     Route: 030
     Dates: start: 20100201, end: 20100208

REACTIONS (2)
  - ACUTE RESPIRATORY FAILURE [None]
  - PLEURAL EFFUSION [None]
